FAERS Safety Report 9603414 (Version 2)
Quarter: 2013Q4

REPORT INFORMATION
  Report Type: Spontaneous
  Country: US (occurrence: US)
  Receive Date: 20131007
  Receipt Date: 20131007
  Transmission Date: 20140711
  Serious: No
  Sender: FDA-Public Use
  Company Number: US-TEVA-395880USA

PATIENT
  Sex: Male

DRUGS (2)
  1. DIAMOX [Suspect]
     Indication: HEADACHE
  2. DIAMOX [Suspect]

REACTIONS (3)
  - Dyspnoea [Unknown]
  - Off label use [Unknown]
  - Acidosis [Unknown]
